FAERS Safety Report 5760390-4 (Version None)
Quarter: 2008Q2

REPORT INFORMATION
  Report Type: 
  Country: None (occurrence: None)
  Receive Date: 20080602
  Receipt Date: 20080521
  Transmission Date: 20081010
  Serious: Yes (Death)
  Sender: FDA-Public Use
  Company Number: GXKR2008GB04677

PATIENT
  Age: 63 Year
  Sex: Male

DRUGS (12)
  1. SIMVASTATIN [Suspect]
  2. FUSIDIC ACID [Suspect]
     Indication: STAPHYLOCOCCAL INFECTION
     Dosage: ORAL
     Route: 048
  3. DESLORATADINE (DESLORATADINE) [Concomitant]
  4. ENALAPRIL MALEATE [Concomitant]
  5. DIPYRADAMOLE (DIPYRIDAMOLE) [Concomitant]
  6. ACETYLSALICYLIC ACID SRT [Concomitant]
  7. BISOPROLOL FUMARATE [Concomitant]
  8. RANITIDINE [Concomitant]
  9. DICLOFENAC SODIUM [Concomitant]
  10. VANCOMYCIN [Concomitant]
  11. CEFUROXIME [Concomitant]
  12. METRONIDAZOLE [Concomitant]

REACTIONS (15)
  - BACK PAIN [None]
  - CARDIAC ARREST [None]
  - CARDIAC PACEMAKER INSERTION [None]
  - COLITIS ISCHAEMIC [None]
  - CONTINUOUS HAEMODIAFILTRATION [None]
  - COUGH DECREASED [None]
  - DRUG INTERACTION [None]
  - HAEMORRHAGE [None]
  - METABOLIC DISORDER [None]
  - MYOCARDIAL INFARCTION [None]
  - POLYNEUROPATHY [None]
  - RENAL FAILURE ACUTE [None]
  - RHABDOMYOLYSIS [None]
  - SPLENIC RUPTURE [None]
  - TACHYPNOEA [None]
